FAERS Safety Report 8523225-2 (Version None)
Quarter: 2012Q3

REPORT INFORMATION
  Report Type: 
  Country: None (occurrence: None)
  Receive Date: 20120720
  Receipt Date: 20120712
  Transmission Date: 20120928
  Serious: Yes (Death)
  Sender: FDA-Public Use
  Company Number: US-BAYER-2012-070890

PATIENT
  Age: 30 Year
  Sex: Female
  Weight: 151.93 kg

DRUGS (5)
  1. YASMIN [Suspect]
     Dosage: UNK
  2. MOTRIN [Concomitant]
     Indication: CONTUSION
     Dosage: 800 MG, TID
     Route: 048
  3. VICODIN [Concomitant]
     Indication: CONTUSION
     Dosage: ONE TAB 6 HOURLY, PRN
  4. VICODIN [Concomitant]
     Indication: LIGAMENT SPRAIN
  5. MOTRIN [Concomitant]
     Indication: LIGAMENT SPRAIN

REACTIONS (2)
  - DEEP VEIN THROMBOSIS [None]
  - PULMONARY EMBOLISM [None]
